FAERS Safety Report 19495676 (Version 1)
Quarter: 2021Q3

REPORT INFORMATION
  Report Type: Report from Study
  Country: IT (occurrence: IT)
  Receive Date: 20210706
  Receipt Date: 20210706
  Transmission Date: 20211014
  Serious: Yes (Other)
  Sender: FDA-Public Use
  Company Number: IT-TEVA-2021-IT-1929069

PATIENT
  Age: 86 Year
  Sex: Male

DRUGS (6)
  1. OLPRESS 20 MG COMPRESSE RIVESTITE CON FILM [Concomitant]
     Active Substance: OLMESARTAN MEDOXOMIL
  2. EXOCIN [Concomitant]
     Active Substance: OFLOXACIN
  3. IGROTON [Suspect]
     Active Substance: CHLORTHALIDONE
     Indication: PRODUCT USED FOR UNKNOWN INDICATION
     Dates: start: 20210101, end: 20210518
  4. YELLOX [Concomitant]
     Active Substance: BROMFENAC SODIUM
  5. PANTOPRAZOLE SODIUM SESQUIHYDRATE [Suspect]
     Active Substance: PANTOPRAZOLE SODIUM
     Indication: PRODUCT USED FOR UNKNOWN INDICATION
     Route: 065
  6. CARDIOASPIRIN 100 MG COMPRESSE GASTRORESISTENTI [Concomitant]
     Active Substance: ASPIRIN

REACTIONS (1)
  - Hypokalaemia [Not Recovered/Not Resolved]

NARRATIVE: CASE EVENT DATE: 20210518
